FAERS Safety Report 9552744 (Version 2)
Quarter: 2013Q3

REPORT INFORMATION
  Report Type: Spontaneous
  Country: US (occurrence: US)
  Receive Date: 20130925
  Receipt Date: 20130925
  Transmission Date: 20140515
  Serious: No
  Sender: FDA-Public Use
  Company Number: US-PURDUE-USA-2012-0094430

PATIENT
  Age: 37 Year
  Sex: Male

DRUGS (2)
  1. MORPHINE SULFATE EXTENDED-RELEASE TABLETS (RHODES 74-769, 74-862) [Suspect]
     Indication: PAIN
     Dosage: 30 MG, BID
     Route: 048
     Dates: start: 20121001, end: 201210
  2. PERCOCET                           /00867901/ [Concomitant]
     Indication: PAIN
     Dosage: 7.5 MG, UNK
     Route: 048

REACTIONS (2)
  - Migraine [Unknown]
  - Nausea [Unknown]
